FAERS Safety Report 15997248 (Version 1)
Quarter: 2019Q1

REPORT INFORMATION
  Report Type: Report from Study
  Country: AR (occurrence: AR)
  Receive Date: 20190222
  Receipt Date: 20190222
  Transmission Date: 20190418
  Serious: Yes (Hospitalization)
  Sender: FDA-Public Use
  Company Number: PHHY2019AR041751

PATIENT
  Sex: Male

DRUGS (1)
  1. DIOVAN [Suspect]
     Active Substance: VALSARTAN
     Indication: CARDIAC OPERATION
     Dosage: 1 DF (1 OF 320), QD
     Route: 065
     Dates: start: 2009

REACTIONS (3)
  - Urinary tract infection [Recovering/Resolving]
  - Product use in unapproved indication [Unknown]
  - Blood pressure decreased [Recovering/Resolving]
